FAERS Safety Report 6883375-3 (Version None)
Quarter: 2010Q3

REPORT INFORMATION
  Report Type: 
  Country: None (occurrence: None)
  Receive Date: 20100727
  Receipt Date: 20071107
  Transmission Date: 20110219
  Serious: Yes (Hospitalization, Other)
  Sender: FDA-Public Use
  Company Number: US-PFIZER INC-2006119031

PATIENT
  Sex: Male
  Weight: 88.5 kg

DRUGS (6)
  1. CELEBREX [Suspect]
     Indication: PAIN
     Dates: start: 20020101, end: 20030101
  2. BEXTRA [Suspect]
     Indication: MUSCULOSKELETAL PAIN
     Dates: start: 20020101, end: 20030101
  3. VIOXX [Suspect]
     Indication: PAIN
     Route: 048
     Dates: start: 20020101
  4. ASPIRIN [Concomitant]
     Indication: MYOCARDIAL INFARCTION
     Dates: start: 19900101
  5. ASPIRIN [Concomitant]
     Indication: CEREBROVASCULAR ACCIDENT
  6. ASPIRIN [Concomitant]
     Indication: TRANSIENT ISCHAEMIC ATTACK

REACTIONS (1)
  - MYOCARDIAL INFARCTION [None]
